FAERS Safety Report 14815387 (Version 3)
Quarter: 2018Q2

REPORT INFORMATION
  Report Type: Spontaneous
  Country: US (occurrence: US)
  Receive Date: 20180426
  Receipt Date: 20180504
  Transmission Date: 20180711
  Serious: No
  Sender: FDA-Public Use
  Company Number: US-JNJFOC-20180336420

PATIENT
  Sex: Male

DRUGS (2)
  1. RISPERDAL [Suspect]
     Active Substance: RISPERIDONE
     Indication: IRRITABILITY
     Dosage: TITRATING DOSES
     Route: 048
     Dates: end: 201709
  2. RISPERDAL [Suspect]
     Active Substance: RISPERIDONE
     Indication: AFFECTIVE DISORDER
     Dosage: TITRATING DOSES
     Route: 048
     Dates: end: 201709

REACTIONS (7)
  - Drug ineffective for unapproved indication [Unknown]
  - Weight increased [Unknown]
  - General symptom [Unknown]
  - Blood prolactin abnormal [Unknown]
  - Liver disorder [Unknown]
  - Malaise [Unknown]
  - Off label use [Unknown]

NARRATIVE: CASE EVENT DATE: 2017
